FAERS Safety Report 10070215 (Version 1)
Quarter: 2014Q2

REPORT INFORMATION
  Report Type: Spontaneous
  Country: US (occurrence: None)
  Receive Date: 20140408
  Receipt Date: 20140408
  Transmission Date: 20141212
  Serious: Yes (Hospitalization)
  Sender: FDA-Public Use
  Company Number: 20140171

PATIENT
  Age: 61 Year
  Sex: Male

DRUGS (1)
  1. LEVETIRACETAM INJECTION (0517-2=3605-01) 500 MG/5ML [Suspect]
     Indication: CONVULSION

REACTIONS (1)
  - Pericardial effusion [None]
